FAERS Safety Report 7875310-6 (Version None)
Quarter: 2011Q4

REPORT INFORMATION
  Report Type: 
  Country: None (occurrence: None)
  Receive Date: 20111031
  Receipt Date: 20111017
  Transmission Date: 20120403
  Serious: Yes (Other)
  Sender: FDA-Public Use
  Company Number: PHHY2011US27417

PATIENT
  Sex: Male

DRUGS (2)
  1. TASIGNA [Suspect]
     Dosage: 300 MG, BID
     Route: 048
  2. TASIGNA [Suspect]
     Indication: CHRONIC MYELOID LEUKAEMIA
     Dosage: 300 MG, BID
     Route: 048
     Dates: start: 20110304

REACTIONS (19)
  - PENIS CARCINOMA [None]
  - PAIN [None]
  - MUSCLE SPASMS [None]
  - BLOOD BILIRUBIN INCREASED [None]
  - MELANOCYTIC NAEVUS [None]
  - SKIN PAPILLOMA [None]
  - GENITAL INFECTION [None]
  - TESTICULAR SWELLING [None]
  - DECREASED APPETITE [None]
  - BLOOD GLUCOSE INCREASED [None]
  - ELECTROCARDIOGRAM QT PROLONGED [None]
  - RASH [None]
  - COUGH [None]
  - BLOOD ALKALINE PHOSPHATASE INCREASED [None]
  - NEOPLASM MALIGNANT [None]
  - ALOPECIA [None]
  - MALIGNANT MELANOMA [None]
  - TESTICULAR PAIN [None]
  - FATIGUE [None]
